FAERS Safety Report 7769789-8 (Version None)
Quarter: 2011Q3

REPORT INFORMATION
  Report Type: 
  Country: None (occurrence: None)
  Receive Date: 20110922
  Receipt Date: 20100527
  Transmission Date: 20111222
  Serious: No
  Sender: FDA-Public Use
  Company Number: US-ASTRAZENECA-2007UW10287

PATIENT
  Age: 34 Year
  Sex: Female
  Weight: 61.2 kg

DRUGS (14)
  1. SEROQUEL [Suspect]
     Indication: ANXIETY
     Route: 048
     Dates: start: 20040101, end: 20060101
  2. SEROQUEL [Suspect]
     Indication: AGITATION
     Route: 048
     Dates: start: 20040101, end: 20060101
  3. SEROQUEL [Suspect]
     Dosage: 25- 300 MG
     Route: 048
     Dates: start: 20050106, end: 20061101
  4. SEROQUEL [Suspect]
     Dosage: 25- 300 MG
     Route: 048
     Dates: start: 20050106, end: 20061101
  5. RESTORIL [Concomitant]
     Dates: start: 20050106
  6. REVIA [Concomitant]
     Dates: start: 20050106
  7. SEROQUEL [Suspect]
     Dosage: 25- 300 MG
     Route: 048
     Dates: start: 20050106, end: 20061101
  8. RISPERDAL [Concomitant]
     Indication: PANIC DISORDER
     Dates: start: 20050106
  9. SEROQUEL [Suspect]
     Indication: DEPRESSION
     Route: 048
     Dates: start: 20040101, end: 20060101
  10. LISINOPRIL [Concomitant]
  11. AVANDAMET [Concomitant]
     Dosage: 4/1000 MG
  12. PROZAC [Concomitant]
     Dates: start: 20050106
  13. RISPERDAL [Concomitant]
     Indication: MAJOR DEPRESSION
     Dates: start: 20050106
  14. RISPERDAL [Concomitant]
     Indication: ANXIETY
     Dates: start: 20050106

REACTIONS (5)
  - DIABETIC COMPLICATION [None]
  - GLYCOSURIA [None]
  - HYPERGLYCAEMIA [None]
  - TYPE 2 DIABETES MELLITUS [None]
  - WEIGHT INCREASED [None]
